FAERS Safety Report 17028152 (Version 1)
Quarter: 2019Q4

REPORT INFORMATION
  Report Type: Spontaneous
  Country: GR (occurrence: GR)
  Receive Date: 20191113
  Receipt Date: 20191113
  Transmission Date: 20200122
  Serious: Yes (Other)
  Sender: FDA-Public Use
  Company Number: GR-MYLANLABS-2019M1108212

PATIENT
  Age: 64 Day
  Sex: Male

DRUGS (2)
  1. BRUFEN [Suspect]
     Active Substance: IBUPROFEN
     Indication: PATENT DUCTUS ARTERIOSUS
     Dosage: UNK
  2. LEVOTHYROXINE. [Concomitant]
     Active Substance: LEVOTHYROXINE
     Indication: TRANSIENT HYPOTHYROXINAEMIA OF PREMATURITY
     Dosage: UP TO 8 MONTHS (AGE) THYROID HORMONES NORMAL UP TO THIS DAY

REACTIONS (1)
  - Drug ineffective [Unknown]
